FAERS Safety Report 5372276-8 (Version None)
Quarter: 2007Q2

REPORT INFORMATION
  Report Type: 
  Country: None (occurrence: None)
  Receive Date: 20070620
  Receipt Date: 20070227
  Transmission Date: 20071010
  Serious: No
  Sender: FDA-Public Use
  Company Number: 2007RL000079

PATIENT
  Sex: Male

DRUGS (4)
  1. OMACOR [Suspect]
     Indication: DRUG USE FOR UNKNOWN INDICATION
     Dosage: 1 GM;PO
     Route: 048
     Dates: start: 20060101
  2. NIASPAN [Suspect]
     Indication: DRUG USE FOR UNKNOWN INDICATION
  3. BYETTA [Concomitant]
  4. BLOOD PRESSURE MEDICATION (UNSPECIFIED) [Concomitant]

REACTIONS (2)
  - RASH ERYTHEMATOUS [None]
  - RASH MACULO-PAPULAR [None]
